FAERS Safety Report 5204189-6 (Version None)
Quarter: 2007Q1

REPORT INFORMATION
  Report Type: 
  Country: None (occurrence: None)
  Receive Date: 20070110
  Receipt Date: 20060104
  Transmission Date: 20070707
  Serious: No
  Sender: FDA-Public Use
  Company Number: US-BRISTOL-MYERS SQUIBB COMPANY-13236401

PATIENT
  Sex: Male
  Weight: 42 kg

DRUGS (2)
  1. ABILIFY [Suspect]
     Indication: ABNORMAL BEHAVIOUR
     Route: 048
     Dates: start: 20050301
  2. ABILIFY [Suspect]
     Indication: ANGER
     Route: 048
     Dates: start: 20050301

REACTIONS (1)
  - WEIGHT INCREASED [None]
